FAERS Safety Report 22271022 (Version 1)
Quarter: 2023Q2

REPORT INFORMATION
  Report Type: Spontaneous
  Country: US (occurrence: US)
  Receive Date: 20230501
  Receipt Date: 20230501
  Transmission Date: 20230721
  Serious: No
  Sender: FDA-Public Use
  Company Number: US-KOWA PHARMACEUTICALS-2023KOW00005

PATIENT
  Age: 20 Year
  Sex: Female

DRUGS (1)
  1. SEGLENTIS [Suspect]
     Active Substance: CELECOXIB\TRAMADOL HYDROCHLORIDE
     Indication: Oral surgery
     Dosage: 2 TABLETS, 2X/DAY (EVERY 12 HOURS)
     Dates: start: 20230112, end: 20230112

REACTIONS (3)
  - Vomiting [Unknown]
  - Off label use [Recovered/Resolved]
  - Product prescribing error [Recovered/Resolved]

NARRATIVE: CASE EVENT DATE: 20230112
